FAERS Safety Report 16656089 (Version 1)
Quarter: 2019Q3

REPORT INFORMATION
  Report Type: Spontaneous
  Country: US (occurrence: US)
  Receive Date: 20190617
  Receipt Date: 20190617
  Transmission Date: 20191004
  Serious: No
  Sender: FDA-Public Use
  Company Number: None

PATIENT
  Age: 89 Year
  Sex: Male

DRUGS (1)
  1. WARFARIN [Suspect]
     Active Substance: WARFARIN
     Indication: ATRIAL FIBRILLATION
     Route: 048

REACTIONS (8)
  - Pneumonia aspiration [None]
  - Nausea [None]
  - Haematochezia [None]
  - Flatulence [None]
  - Haematemesis [None]
  - Product use complaint [None]
  - Vomiting [None]
  - Small intestinal obstruction [None]

NARRATIVE: CASE EVENT DATE: 20190512
